FAERS Safety Report 19354706 (Version 1)
Quarter: 2021Q2

REPORT INFORMATION
  Report Type: Spontaneous
  Country: US (occurrence: US)
  Receive Date: 20210601
  Receipt Date: 20210601
  Transmission Date: 20210717
  Serious: Yes (Hospitalization)
  Sender: FDA-Public Use
  Company Number: None

PATIENT
  Age: 23 Year
  Sex: Female

DRUGS (12)
  1. MINOCYCLINE [Concomitant]
     Active Substance: MINOCYCLINE HYDROCHLORIDE
  2. VENTOLIN HFA [Concomitant]
     Active Substance: ALBUTEROL SULFATE
  3. ESTARYLLA [Concomitant]
     Active Substance: ETHINYL ESTRADIOL\NORGESTIMATE
  4. SODIUM CHLOR NEB 7% [Concomitant]
  5. FLUTICASONE SPR [Concomitant]
  6. LINEZOLID. [Concomitant]
     Active Substance: LINEZOLID
  7. LEVOFLOXACIN. [Concomitant]
     Active Substance: LEVOFLOXACIN
  8. CIPROFLOXACN [Concomitant]
     Active Substance: CIPROFLOXACIN
  9. ZENPEP [Suspect]
     Active Substance: PANCRELIPASE AMYLASE\PANCRELIPASE LIPASE\PANCRELIPASE PROTEASE
     Indication: CYSTIC FIBROSIS
     Dosage: TAKE 6 CAPS PO WITH MEALS AND 3 TO 4 CAPS WITH SNACKS: MAX 30 CAPS/DAY?
     Route: 048
     Dates: start: 20150410
  10. ADVAIR HFA [Concomitant]
     Active Substance: FLUTICASONE PROPIONATE\SALMETEROL XINAFOATE
  11. ALBUTEROL HFA [Concomitant]
     Active Substance: ALBUTEROL SULFATE
  12. VITAMIN D [Concomitant]
     Active Substance: VITAMIN D NOS

REACTIONS (1)
  - Hospitalisation [None]

NARRATIVE: CASE EVENT DATE: 20210508
